FAERS Safety Report 23993681 (Version 1)
Quarter: 2024Q2

REPORT INFORMATION
  Report Type: Spontaneous
  Country: JP (occurrence: JP)
  Receive Date: 20240620
  Receipt Date: 20240620
  Transmission Date: 20240716
  Serious: Yes (Other)
  Sender: FDA-Public Use
  Company Number: JP-NBI-BJ202408829

PATIENT
  Age: 62 Year
  Sex: Female

DRUGS (2)
  1. OFEV [Suspect]
     Active Substance: NINTEDANIB
     Indication: Idiopathic pulmonary fibrosis
     Route: 048
     Dates: start: 20230601
  2. CODEINE PHOSPHATE [Suspect]
     Active Substance: CODEINE PHOSPHATE
     Indication: Cough
     Route: 048

REACTIONS (18)
  - Idiopathic pulmonary fibrosis [Not Recovered/Not Resolved]
  - Physical deconditioning [Not Recovered/Not Resolved]
  - Dizziness [Unknown]
  - Blood pressure decreased [Not Recovered/Not Resolved]
  - Constipation [Not Recovered/Not Resolved]
  - Diarrhoea [Not Recovered/Not Resolved]
  - Anal incontinence [Not Recovered/Not Resolved]
  - Vomiting [Not Recovered/Not Resolved]
  - Cough [Not Recovered/Not Resolved]
  - Anaemia [Unknown]
  - Malnutrition [Unknown]
  - Dehydration [Unknown]
  - Weight decreased [Unknown]
  - Insomnia [Not Recovered/Not Resolved]
  - Weight decreased [Not Recovered/Not Resolved]
  - Decreased appetite [Not Recovered/Not Resolved]
  - Parosmia [Not Recovered/Not Resolved]
  - Listless [Not Recovered/Not Resolved]

NARRATIVE: CASE EVENT DATE: 20240517
